FAERS Safety Report 9146240 (Version 1)
Quarter: 2013Q1

REPORT INFORMATION
  Report Type: Spontaneous
  Country: AU (occurrence: AU)
  Receive Date: 20130307
  Receipt Date: 20130307
  Transmission Date: 20140127
  Serious: Yes (Hospitalization)
  Sender: FDA-Public Use
  Company Number: AU-009507513-1303AUS001701

PATIENT
  Age: 36 Year
  Sex: Female
  Weight: 61.8 kg

DRUGS (3)
  1. PEGINTERFERON ALFA-2B [Suspect]
     Dosage: 120 MICROGRAM, UNK
     Dates: start: 20120415, end: 20121019
  2. RIBAVIRIN [Suspect]
     Dosage: 200 MICROGRAM, UNK
     Route: 048
     Dates: start: 20120415, end: 20121019
  3. BOCEPREVIR [Suspect]
     Dosage: 200 MG, UNK
     Route: 048
     Dates: start: 20120513, end: 20121019

REACTIONS (2)
  - Cellulitis [Recovered/Resolved]
  - Abscess [Recovered/Resolved]
